FAERS Safety Report 8010897-4 (Version None)
Quarter: 2011Q4

REPORT INFORMATION
  Report Type: 
  Country: None (occurrence: None)
  Receive Date: 20111228
  Receipt Date: 20111108
  Transmission Date: 20120403
  Serious: Yes (Hospitalization, Other)
  Sender: FDA-Public Use
  Company Number: BR-ROCHE-752973

PATIENT
  Sex: Female
  Weight: 60 kg

DRUGS (17)
  1. PROCIMAX [Concomitant]
     Dosage: FREQUENCY: HALF CAPSULE
  2. CALCORT [Concomitant]
     Dosage: FREQUENCY: 1 AMPOULE
  3. OSTEONUTRI [Concomitant]
  4. METHOTREXATE [Concomitant]
     Indication: RHEUMATOID ARTHRITIS
     Dosage: 10 TABLET ON SUNDAYS
  5. MABTHERA [Suspect]
     Dosage: DOSE: 500 MG/50 ML,
     Route: 042
     Dates: start: 20100815, end: 20100815
  6. MABTHERA [Suspect]
     Route: 042
     Dates: start: 20110311, end: 20110311
  7. MABTHERA [Suspect]
     Route: 042
     Dates: start: 20110812, end: 20110812
  8. MIOSAN [Concomitant]
     Dosage: FREQUENCY: 1 CAPSULE
  9. MABTHERA [Suspect]
     Route: 042
     Dates: start: 20110221, end: 20110221
  10. PREDNISOLONE [Concomitant]
  11. VITAMIN B-12 [Concomitant]
  12. CHONDROITIN SULFATE/GLUCOSAMINE [Concomitant]
     Dosage: FREQUENCY: 3 CAPSULES
  13. ACETAMINOPHEN [Concomitant]
     Dosage: IT WAS REPORTED THAT PATIENT RECEIVED ACETAMINOPHEN AS PREMEDICATION
  14. SERTRALINE HYDROCHLORIDE [Concomitant]
  15. CITONEURIN [Concomitant]
  16. MABTHERA [Suspect]
     Indication: RHEUMATOID ARTHRITIS
     Dosage: DOSE: 500 MG/50 ML
     Route: 042
     Dates: start: 20100801, end: 20100801
  17. FOLIC ACID [Concomitant]

REACTIONS (17)
  - DEPRESSED MOOD [None]
  - FALL [None]
  - FINGER DEFORMITY [None]
  - MEMORY IMPAIRMENT [None]
  - LIMB INJURY [None]
  - HOSPITALISATION [None]
  - PROGRESSIVE MULTIFOCAL LEUKOENCEPHALOPATHY [None]
  - PYREXIA [None]
  - THERAPEUTIC RESPONSE DECREASED [None]
  - DECUBITUS ULCER [None]
  - TENSION [None]
  - DYSSTASIA [None]
  - DIZZINESS [None]
  - NAUSEA [None]
  - PAIN IN EXTREMITY [None]
  - MUSCULAR WEAKNESS [None]
  - GAIT DISTURBANCE [None]
